FAERS Safety Report 7967330 (Version 3)
Quarter: 2013Q2

REPORT INFORMATION
  Report Type: Spontaneous
  Country: US (occurrence: US)
  Receive Date: 20110531
  Receipt Date: 20130522
  Transmission Date: 20140414
  Serious: Yes (Hospitalization, Other)
  Sender: FDA-Public Use
  Company Number: US-ASTRAZENECA-2011SE32006

PATIENT
  Age: 60 Year
  Sex: Female
  Weight: 59 kg

DRUGS (5)
  1. NEXIUM [Suspect]
     Indication: GASTROOESOPHAGEAL REFLUX DISEASE
     Route: 048
  2. CRESTOR [Suspect]
     Indication: BLOOD CHOLESTEROL ABNORMAL
     Route: 048
  3. CLONIDINE [Concomitant]
     Indication: HYPERTENSION
     Route: 048
  4. ASPIRIN [Concomitant]
     Indication: ANTICOAGULANT THERAPY
     Dosage: LOW DOSE
     Route: 048
  5. PROZAC [Concomitant]
     Indication: DEPRESSION
     Route: 048

REACTIONS (8)
  - Cerebrovascular accident [Unknown]
  - Transient ischaemic attack [Unknown]
  - Condition aggravated [Unknown]
  - Pain [Unknown]
  - Dysphagia [Unknown]
  - Adverse event [Unknown]
  - Gastrooesophageal reflux disease [Unknown]
  - Drug dose omission [Unknown]
